FAERS Safety Report 7162879-2 (Version None)
Quarter: 2010Q4

REPORT INFORMATION
  Report Type: 
  Country: None (occurrence: None)
  Receive Date: 20101201
  Receipt Date: 20101115
  Transmission Date: 20110411
  Serious: Yes (Hospitalization, Other)
  Sender: FDA-Public Use
  Company Number: 200935705NA

PATIENT
  Age: 25 Year
  Sex: Female
  Weight: 108.8633 kg

DRUGS (13)
  1. YASMIN [Suspect]
     Indication: CONVULSION
     Dosage: ORAL
     Route: 048
  2. YASMIN [Suspect]
     Indication: MENSTRUATION IRREGULAR
     Dosage: ORAL
     Route: 048
  3. YAZ [Suspect]
     Indication: MENSTRUATION IRREGULAR
     Dosage: ORAL
     Route: 048
  4. OCELLA [Suspect]
     Indication: MENSTRUATION IRREGULAR
     Dosage: ORAL
     Route: 048
  5. ALBUTEROL [Concomitant]
  6. EXCEDRIN (MIGRAINE) [Concomitant]
  7. IBUPROFEN [Concomitant]
  8. ASCORBIC ACID [Concomitant]
  9. PHENOBARBITAL TAB [Concomitant]
  10. MECLIZINE [Concomitant]
  11. NEXIUM [Concomitant]
  12. VICODIN [Concomitant]
  13. ZYRTEC [Concomitant]

REACTIONS (6)
  - CHOLECYSTITIS CHRONIC [None]
  - CHOLELITHIASIS [None]
  - EPILEPSY [None]
  - INTENTIONAL DRUG MISUSE [None]
  - METAPLASIA [None]
  - OFF LABEL USE [None]
